FAERS Safety Report 21962065 (Version 1)
Quarter: 2023Q1

REPORT INFORMATION
  Report Type: Spontaneous
  Country: US (occurrence: US)
  Receive Date: 20230207
  Receipt Date: 20230207
  Transmission Date: 20230418
  Serious: Yes (Death)
  Sender: FDA-Public Use
  Company Number: US-PFIZER INC-PV202200053456

PATIENT
  Age: 76 Year
  Sex: Male

DRUGS (2)
  1. ZIRABEV [Suspect]
     Active Substance: BEVACIZUMAB-BVZR
     Dosage: 400 MG, CYCLIC (400 MG VIAL INF 400 MG IV Q 14 #32ML 3)
     Route: 042
  2. ZIRABEV [Suspect]
     Active Substance: BEVACIZUMAB-BVZR
     Dosage: 401 MG

REACTIONS (1)
  - Death [Fatal]
